FAERS Safety Report 23828207 (Version 2)
Quarter: 2024Q2

REPORT INFORMATION
  Report Type: Report from Study
  Country: GB (occurrence: GB)
  Receive Date: 20240508
  Receipt Date: 20240603
  Transmission Date: 20240715
  Serious: Yes (Hospitalization)
  Sender: FDA-Public Use
  Company Number: GB-Vifor (International) Inc.-VIT-2024-03807

PATIENT
  Age: 71 Year
  Sex: Female
  Weight: 51.2 kg

DRUGS (19)
  1. AVACOPAN [Suspect]
     Active Substance: AVACOPAN
     Indication: Anti-neutrophil cytoplasmic antibody positive vasculitis
     Dosage: 30 MILLIGRAM, QD
     Route: 048
     Dates: start: 20240118, end: 20240120
  2. AVACOPAN [Suspect]
     Active Substance: AVACOPAN
     Dosage: 10 MILLIGRAM, QD (COMPLETION OF PLANNED COURSE)
     Route: 048
     Dates: start: 20240208, end: 20240214
  3. AVACOPAN [Suspect]
     Active Substance: AVACOPAN
     Dosage: 30 MILLIGRAM, QD (COMPLETION OF PLANNED COURSE)
     Route: 048
     Dates: start: 20240215
  4. OMEPRAZOLE [Concomitant]
     Active Substance: DONEPEZIL HYDROCHLORIDE\OMEPRAZOLE\OMEPRAZOLE MAGNESIUM
     Indication: Prophylaxis against gastrointestinal ulcer
     Dosage: 20 MILLIGRAM, QD
     Dates: start: 20240105
  5. COTRIMOXAZOLE [Concomitant]
     Active Substance: SULFAMETHOXAZOLE\TRIMETHOPRIM
     Indication: Infection prophylaxis
     Dosage: UNK (ALTERNATE DAYS)
     Route: 048
     Dates: start: 20240105
  6. DOXAZOSIN MESYLATE [Concomitant]
     Active Substance: DOXAZOSIN MESYLATE
     Indication: Hypertension
     Dosage: 2 MILLIGRAM, QD
     Route: 048
     Dates: start: 20240105
  7. BECLOMETHASONE DIPROPIONATE [Concomitant]
     Active Substance: BECLOMETHASONE DIPROPIONATE
     Indication: Asthma
     Dosage: UNK, QD (INHALED, 2 PUFFS)
  8. BECLOMETHASONE DIPROPIONATE [Concomitant]
     Active Substance: BECLOMETHASONE DIPROPIONATE
     Dosage: INHALED, 2 PUFFS
  9. THEICAL D3 [Concomitant]
     Indication: Vitamin supplementation
     Dosage: 2.5 GRAM, QD
     Dates: start: 20240104
  10. THEICAL D3 [Concomitant]
     Indication: Vitamin supplementation
  11. ALBUTEROL [Concomitant]
     Active Substance: ALBUTEROL
     Indication: Asthma
     Dosage: UNK, QD (INHALED, 2 PUFFS , 1-4 TIMES PER DAY AS NEEDED)
     Route: 065
  12. PREDNISOLONE [Concomitant]
     Active Substance: PREDNISOLONE
     Indication: Anti-neutrophil cytoplasmic antibody positive vasculitis
     Dosage: 60 MILLIGRAM, QD (COMPLETION OF PLANNED COURSE)
     Route: 048
     Dates: start: 20240102, end: 20240118
  13. PREDNISOLONE [Concomitant]
     Active Substance: PREDNISOLONE
     Dosage: 30 MILLIGRAM, QD (COMPLETION OF PLANNED COURSE)
     Route: 048
     Dates: start: 20240122, end: 20240214
  14. PREDNISOLONE [Concomitant]
     Active Substance: PREDNISOLONE
     Dosage: 25 MILLIGRAM, QD (COMPLETION OF PLANNED COURSE)
     Route: 048
     Dates: start: 20240215, end: 20240223
  15. PREDNISOLONE [Concomitant]
     Active Substance: PREDNISOLONE
     Dosage: 20 MILLIGRAM, QD (COMPLETION OF PLANNED COURSE)
     Route: 048
     Dates: start: 20240223, end: 20240229
  16. PREDNISOLONE [Concomitant]
     Active Substance: PREDNISOLONE
     Dosage: 15 MILLIGRAM, QD (COMPLETION OF PLANNED COURSE)
     Route: 048
     Dates: start: 20240301, end: 20240307
  17. PREDNISOLONE [Concomitant]
     Active Substance: PREDNISOLONE
     Dosage: 10 MILLIGRAM, QD (COMPLETION OF PLANNED COURSE)
     Route: 048
     Dates: start: 20240308, end: 20240314
  18. PREDNISOLONE [Concomitant]
     Active Substance: PREDNISOLONE
     Dosage: 5 MILLIGRAM, QD (COMPLETION OF PLANNED COURSE)
     Route: 048
     Dates: start: 20240315, end: 20240331
  19. PREDNISOLONE [Concomitant]
     Active Substance: PREDNISOLONE
     Dosage: 2.5 MILLIGRAM, QD (COMPLETION OF PLANNED COURSE)
     Route: 048
     Dates: start: 20240401

REACTIONS (3)
  - Hypervolaemia [Not Recovered/Not Resolved]
  - Vomiting [Recovered/Resolved]
  - Diarrhoea [Recovered/Resolved with Sequelae]

NARRATIVE: CASE EVENT DATE: 20240120
